FAERS Safety Report 7379907-1 (Version None)
Quarter: 2011Q1

REPORT INFORMATION
  Report Type: 
  Country: None (occurrence: None)
  Receive Date: 20110329
  Receipt Date: 20110323
  Transmission Date: 20110831
  Serious: Yes (Life-Threatening)
  Sender: FDA-Public Use
  Company Number: JP-EISAI INC-E2090-01303-SPO-JP

PATIENT
  Sex: Male

DRUGS (5)
  1. MUCODYNE [Concomitant]
     Route: 048
     Dates: end: 20100820
  2. EXCEGRAN [Suspect]
     Indication: EPILEPSY
     Route: 048
     Dates: start: 20100715, end: 20100831
  3. MUCOSOLVAN [Concomitant]
     Route: 048
     Dates: start: 20100726, end: 20100831
  4. THYRADIN-S POWDER [Concomitant]
     Indication: HYPOTHYROIDISM
     Route: 048
     Dates: start: 20100709
  5. BERACHIN [Concomitant]
     Route: 048
     Dates: start: 20100819, end: 20100831

REACTIONS (6)
  - URINE OUTPUT DECREASED [None]
  - FEEDING DISORDER OF INFANCY OR EARLY CHILDHOOD [None]
  - HYPOHIDROSIS [None]
  - CEREBRAL ATROPHY [None]
  - RASH [None]
  - HYPONATRAEMIA [None]
